FAERS Safety Report 24716371 (Version 1)
Quarter: 2024Q4

REPORT INFORMATION
  Report Type: Spontaneous
  Country: US (occurrence: US)
  Receive Date: 20241210
  Receipt Date: 20241210
  Transmission Date: 20250115
  Serious: Yes (Other)
  Sender: TEVA
  Company Number: US-TEVA-VS-3272504

PATIENT
  Sex: Female

DRUGS (1)
  1. METHOTREXATE [Suspect]
     Active Substance: METHOTREXATE
     Indication: Acute promyelocytic leukaemia
     Route: 048

REACTIONS (3)
  - Toxicity to various agents [Recovered/Resolved]
  - Mucocutaneous toxicity [Recovered/Resolved]
  - Pancytopenia [Unknown]
